FAERS Safety Report 5892217-4 (Version None)
Quarter: 2008Q3

REPORT INFORMATION
  Report Type: 
  Country: None (occurrence: None)
  Receive Date: 20080918
  Receipt Date: 20071022
  Transmission Date: 20090109
  Serious: Yes (Hospitalization)
  Sender: FDA-Public Use
  Company Number: 2007-01029FE

PATIENT
  Age: 89 Year
  Sex: Female

DRUGS (6)
  1. MINIRIN [Suspect]
     Dates: end: 20070719
  2. LERCANIDIPINE HYDROCHLORIDE [Concomitant]
  3. ENALAPRIL MALEATE [Concomitant]
  4. ZOPICLONE [Concomitant]
  5. FERROUS SULFATE [Concomitant]
  6. TRIOBE [Concomitant]

REACTIONS (1)
  - INAPPROPRIATE ANTIDIURETIC HORMONE SECRETION [None]
